FAERS Safety Report 6203696-7 (Version None)
Quarter: 2009Q2

REPORT INFORMATION
  Report Type: 
  Country: None (occurrence: None)
  Receive Date: 20090527
  Receipt Date: 20090327
  Transmission Date: 20091009
  Serious: Yes (Hospitalization, Other)
  Sender: FDA-Public Use
  Company Number: TR-ELI_LILLY_AND_COMPANY-TR200905004512

PATIENT
  Age: 60 Year
  Sex: Female

DRUGS (5)
  1. HUMULIN N [Suspect]
     Indication: TYPE 2 DIABETES MELLITUS
     Dosage: 24 IU, DAILY (1/D)
     Route: 058
     Dates: start: 20080101
  2. FLUDEX-SR [Concomitant]
     Indication: HYPERTENSION
     Dosage: 1.5 MG, DAILY (1/D)
  3. NORVASC [Concomitant]
     Indication: HYPERTENSION
     Dosage: UNK, DAILY (1/D)
  4. GAVISCON /00237601/ [Concomitant]
     Indication: GASTROINTESTINAL DISORDER
     Dosage: UNK, 3/D
  5. CALCIMAX D3 /01606701/ [Concomitant]
     Indication: OSTEOPOROSIS
     Dosage: UNK, DAILY (1/D)

REACTIONS (2)
  - BREATH ODOUR [None]
  - COMA [None]
